FAERS Safety Report 6439809-1 (Version None)
Quarter: 2009Q4

REPORT INFORMATION
  Report Type: 
  Country: None (occurrence: None)
  Receive Date: 20091112
  Receipt Date: 20091112
  Transmission Date: 20100525
  Serious: Yes (Hospitalization, Other)
  Sender: FDA-Public Use
  Company Number: None

PATIENT
  Age: 30 Year
  Sex: Female
  Weight: 58.9676 kg

DRUGS (6)
  1. YAZ [Suspect]
     Indication: HAEMORRHAGE
     Dosage: 1 TABLET DAILY ORAL
     Route: 048
     Dates: start: 20071217, end: 20081101
  2. YAZ [Suspect]
     Indication: MUSCLE SPASMS
     Dosage: 1 TABLET DAILY ORAL
     Route: 048
     Dates: start: 20071217, end: 20081101
  3. YASMIN [Suspect]
     Indication: HAEMORRHAGE
     Dosage: 1 TABLET DAILY ORAL
     Route: 048
     Dates: start: 20081112, end: 20081219
  4. YASMIN [Suspect]
     Indication: MUSCLE SPASMS
     Dosage: 1 TABLET DAILY ORAL
     Route: 048
     Dates: start: 20081112, end: 20081219
  5. YASMIN [Suspect]
     Indication: HAEMORRHAGE
     Dosage: 1 TABLET DAILY ORAL
     Route: 048
     Dates: start: 20090425, end: 20090725
  6. YASMIN [Suspect]
     Indication: MUSCLE SPASMS
     Dosage: 1 TABLET DAILY ORAL
     Route: 048
     Dates: start: 20090425, end: 20090725

REACTIONS (2)
  - CEREBROVASCULAR ACCIDENT [None]
  - UNEVALUABLE EVENT [None]
